FAERS Safety Report 23465960 (Version 2)
Quarter: 2024Q1

REPORT INFORMATION
  Report Type: Report from Study
  Country: US (occurrence: US)
  Receive Date: 20240201
  Receipt Date: 20240220
  Transmission Date: 20240409
  Serious: No
  Sender: FDA-Public Use
  Company Number: US-VIIV HEALTHCARE LIMITED-US2024AMR013187

PATIENT
  Age: 44 Year
  Sex: Female

DRUGS (3)
  1. CABOTEGRAVIR\RILPIVIRINE [Suspect]
     Active Substance: CABOTEGRAVIR\RILPIVIRINE
     Indication: HIV infection
     Dosage: 1500 MG
     Route: 030
     Dates: start: 20231116
  2. CABOTEGRAVIR\RILPIVIRINE [Suspect]
     Active Substance: CABOTEGRAVIR\RILPIVIRINE
  3. CABOTEGRAVIR\RILPIVIRINE [Suspect]
     Active Substance: CABOTEGRAVIR\RILPIVIRINE

REACTIONS (2)
  - Injection site swelling [Recovered/Resolved]
  - Injection site hyperaesthesia [Recovered/Resolved]

NARRATIVE: CASE EVENT DATE: 20231117
